FAERS Safety Report 26077553 (Version 1)
Quarter: 2025Q4

REPORT INFORMATION
  Report Type: Spontaneous
  Country: US (occurrence: US)
  Receive Date: 20251121
  Receipt Date: 20251121
  Transmission Date: 20260117
  Serious: No
  Sender: NOVO NORDISK
  Company Number: US-NOVOPROD-1511414

PATIENT
  Age: 81 Year
  Sex: Female

DRUGS (1)
  1. TRESIBA [Suspect]
     Active Substance: INSULIN DEGLUDEC
     Indication: Type 2 diabetes mellitus
     Dosage: 25 IU, AT NIGHT

REACTIONS (4)
  - Throat irritation [Not Recovered/Not Resolved]
  - Pruritus [Not Recovered/Not Resolved]
  - Rash macular [Not Recovered/Not Resolved]
  - Dysphonia [Not Recovered/Not Resolved]

NARRATIVE: CASE EVENT DATE: 20250801
